FAERS Safety Report 15721238 (Version 3)
Quarter: 2019Q1

REPORT INFORMATION
  Report Type: Report from Study
  Country: US (occurrence: US)
  Receive Date: 20181214
  Receipt Date: 20190312
  Transmission Date: 20190417
  Serious: Yes (Life-Threatening, Other)
  Sender: FDA-Public Use
  Company Number: US-ROCHE-1914207

PATIENT
  Age: 58 Year
  Sex: Female
  Weight: 74.9 kg

DRUGS (11)
  1. RITUXAN [Suspect]
     Active Substance: RITUXIMAB
     Indication: RELAPSING MULTIPLE SCLEROSIS
     Dosage: FOR 4 WEEKS?SHE RECEVIED RITUXAN 500 MG ON 05/APR/2017, 12/APR/2017,19/APR/2017 AND 26/APR/2017
     Route: 042
  2. OCREVUS [Suspect]
     Active Substance: OCRELIZUMAB
     Dosage: ONGOING:NO
     Route: 065
     Dates: start: 201710, end: 201804
  3. EVENING PRIMROSE [Concomitant]
     Route: 048
  4. VITAMIN E [Concomitant]
     Active Substance: .ALPHA.-TOCOPHEROL
     Dosage: 400 UNIT CAPSULE
     Route: 048
  5. FISH OIL [Concomitant]
     Active Substance: FISH OIL
     Dosage: IMMUNOGLOBULIN
     Route: 048
  6. RITUXAN [Suspect]
     Active Substance: RITUXIMAB
     Dosage: ONGOING :YES
     Route: 042
  7. RITUXAN [Suspect]
     Active Substance: RITUXIMAB
     Dosage: ONGOING :NO
     Route: 042
  8. OCREVUS [Suspect]
     Active Substance: OCRELIZUMAB
     Dosage: DAY 1 AND DAY 15
     Route: 042
     Dates: start: 20171121, end: 20180501
  9. OCREVUS [Suspect]
     Active Substance: OCRELIZUMAB
     Indication: RELAPSING MULTIPLE SCLEROSIS
     Dosage: ONGOING UNKNOWN
     Route: 065
  10. LEXAPRO [Concomitant]
     Active Substance: ESCITALOPRAM OXALATE
     Route: 048
  11. VITAMIN D3 [Concomitant]
     Active Substance: CHOLECALCIFEROL
     Dosage: 200 UNIT ORAL CAPSULE
     Route: 048

REACTIONS (10)
  - Immunodeficiency [Unknown]
  - Condition aggravated [Not Recovered/Not Resolved]
  - Herpes zoster [Unknown]
  - Cough [Not Recovered/Not Resolved]
  - Intentional product use issue [Unknown]
  - Deafness [Recovered/Resolved]
  - Sinusitis [Unknown]
  - Globulins decreased [Not Recovered/Not Resolved]
  - Malaise [Not Recovered/Not Resolved]
  - Off label use [Unknown]

NARRATIVE: CASE EVENT DATE: 201712
